FAERS Safety Report 18177709 (Version 1)
Quarter: 2020Q3

REPORT INFORMATION
  Report Type: Other
  Country: CA (occurrence: CA)
  Receive Date: 20200821
  Receipt Date: 20200821
  Transmission Date: 20201103
  Serious: Yes (Other)
  Sender: FDA-Public Use
  Company Number: CA-ROCHE-1764330

PATIENT
  Age: 89 Year
  Sex: Female
  Weight: 67.1 kg

DRUGS (11)
  1. ESBRIET [Suspect]
     Active Substance: PIRFENIDONE
     Route: 048
     Dates: start: 20150214
  2. ELTROXIN [Concomitant]
     Active Substance: LEVOTHYROXINE
  3. ZOPICLONE [Concomitant]
     Active Substance: ZOPICLONE
  4. ACETYLSALICYLIC ACID [Concomitant]
     Active Substance: ASPIRIN
  5. ROSUVASTATIN. [Concomitant]
     Active Substance: ROSUVASTATIN
  6. ESBRIET [Suspect]
     Active Substance: PIRFENIDONE
     Route: 048
  7. ESBRIET [Suspect]
     Active Substance: PIRFENIDONE
     Route: 048
  8. ESBRIET [Suspect]
     Active Substance: PIRFENIDONE
     Route: 048
  9. ESBRIET [Suspect]
     Active Substance: PIRFENIDONE
     Indication: IDIOPATHIC PULMONARY FIBROSIS
     Route: 048
     Dates: start: 20141220
  10. ESBRIET [Suspect]
     Active Substance: PIRFENIDONE
     Dosage: 264 MG ? 267 MG
     Route: 048
     Dates: start: 20150313
  11. IRBESARTAN. [Concomitant]
     Active Substance: IRBESARTAN

REACTIONS (9)
  - Aortic arteriosclerosis [Unknown]
  - Drug intolerance [Unknown]
  - Weight increased [Unknown]
  - Pulmonary hypertension [Unknown]
  - Dyspnoea exertional [Unknown]
  - Fatigue [Unknown]
  - Heart rate increased [Unknown]
  - Respiratory tract infection [Unknown]
  - Pulmonary function test decreased [Unknown]

NARRATIVE: CASE EVENT DATE: 20150225
